FAERS Safety Report 15570684 (Version 1)
Quarter: 2018Q4

REPORT INFORMATION
  Report Type: Spontaneous
  Country: CH (occurrence: CH)
  Receive Date: 20181031
  Receipt Date: 20181031
  Transmission Date: 20190205
  Serious: Yes (Hospitalization)
  Sender: FDA-Public Use
  Company Number: CH-ASTRAZENECA-2018SF39604

PATIENT
  Age: 26682 Day
  Sex: Male
  Weight: 75.1 kg

DRUGS (14)
  1. CYMBALTA [Concomitant]
     Active Substance: DULOXETINE HYDROCHLORIDE
     Route: 048
  2. DIOVAN [Concomitant]
     Active Substance: VALSARTAN
     Route: 048
  3. TORASEMIDE [Concomitant]
     Active Substance: TORSEMIDE
     Route: 048
  4. ASPIRIN CARDIO [Concomitant]
     Active Substance: ASPIRIN
     Route: 048
  5. ZANIDIP [Suspect]
     Active Substance: LERCANIDIPINE HYDROCHLORIDE
     Route: 048
     Dates: end: 201809
  6. CORDARONE [Interacting]
     Active Substance: AMIODARONE HYDROCHLORIDE
     Route: 048
  7. CARDURA CR [Concomitant]
     Active Substance: DOXAZOSIN MESYLATE
     Route: 048
  8. TRESIBA [Concomitant]
     Active Substance: INSULIN DEGLUDEC
     Route: 058
  9. CRESTOR [Suspect]
     Active Substance: ROSUVASTATIN CALCIUM
     Dosage: DATA DI INIZIO TERAPIA NON NOTA
     Route: 048
     Dates: end: 201809
  10. LYRICA [Suspect]
     Active Substance: PREGABALIN
     Route: 048
     Dates: end: 201809
  11. MINITRAN 10 [Concomitant]
     Route: 062
  12. TAVANIC [Suspect]
     Active Substance: LEVOFLOXACIN
     Route: 048
     Dates: start: 201809, end: 201809
  13. CARVEDILOL. [Concomitant]
     Active Substance: CARVEDILOL
     Route: 048
  14. METOLAZONE. [Concomitant]
     Active Substance: METOLAZONE
     Route: 048

REACTIONS (2)
  - Acute kidney injury [Recovered/Resolved]
  - Rhabdomyolysis [Recovered/Resolved]

NARRATIVE: CASE EVENT DATE: 20180914
